FAERS Safety Report 19471873 (Version 1)
Quarter: 2021Q2

REPORT INFORMATION
  Report Type: Spontaneous
  Country: US (occurrence: US)
  Receive Date: 20210628
  Receipt Date: 20210628
  Transmission Date: 20210717
  Serious: No
  Sender: FDA-Public Use
  Company Number: US-ALEMBIC PHARMACUETICALS LIMITED-2021SCAL000282

PATIENT

DRUGS (1)
  1. CELECOXIB. [Suspect]
     Active Substance: CELECOXIB
     Indication: PRODUCT USED FOR UNKNOWN INDICATION
     Dosage: 200 MILLIGRAM (1 CAPSULE BY MOUTH)
     Route: 048
     Dates: start: 202104

REACTIONS (4)
  - Drug ineffective [Unknown]
  - Weight increased [Unknown]
  - Product substitution issue [Unknown]
  - Fluid retention [Unknown]
